FAERS Safety Report 10910152 (Version 1)
Quarter: 2015Q1

REPORT INFORMATION
  Report Type: Spontaneous
  Country: US (occurrence: US)
  Receive Date: 20150312
  Receipt Date: 20150312
  Transmission Date: 20150721
  Serious: No
  Sender: FDA-Public Use
  Company Number: US-SA-2014SA148935

PATIENT
  Age: 59 Year
  Sex: Male

DRUGS (2)
  1. NASACORT ALLERGY 24HR [Suspect]
     Active Substance: TRIAMCINOLONE ACETONIDE
     Indication: MULTIPLE ALLERGIES
     Dosage: SPRAYING TWICE IN EACH NOSTRIL?HE SPRAYED ONCE IN EACH NOSTRIL FOR THE NEXT 2-3 CONSECUTIVE DAYS
     Route: 045
     Dates: start: 20141019
  2. CLARITIN [Concomitant]
     Active Substance: LORATADINE
     Route: 065

REACTIONS (3)
  - Headache [Unknown]
  - Sinus headache [Unknown]
  - Drug dose omission [Unknown]

NARRATIVE: CASE EVENT DATE: 20141022
